FAERS Safety Report 24274664 (Version 4)
Quarter: 2024Q4

REPORT INFORMATION
  Report Type: Spontaneous
  Country: US (occurrence: US)
  Receive Date: 20240902
  Receipt Date: 20241129
  Transmission Date: 20250114
  Serious: No
  Sender: PFIZER
  Company Number: US-PFIZER INC-PV202400112202

PATIENT
  Age: 15 Year
  Sex: Male
  Weight: 54.8 kg

DRUGS (4)
  1. GENOTROPIN [Suspect]
     Active Substance: SOMATROPIN
     Indication: Growth hormone deficiency
     Dosage: 2.4 MG DAILY (0.3 MG/KG/WK)
     Route: 058
  2. GENOTROPIN [Suspect]
     Active Substance: SOMATROPIN
     Indication: Hypopituitarism
     Dosage: 2.2 MG, DAILY
     Route: 058
  3. GENOTROPIN [Suspect]
     Active Substance: SOMATROPIN
     Indication: Short stature
     Dosage: 2.5 MG/DAY 7 DAYS/WEEK (ALTERNATING INJECTING 2.4 MG AND 2.6 MG EVERY OTHER DAY)
     Route: 058
  4. GENOTROPIN [Suspect]
     Active Substance: SOMATROPIN
     Dosage: 2.5 MG/DAY 7 DAYS/WEEK (ALTERNATING INJECTING 2.4 MG AND 2.6 MG EVERY OTHER DAY)
     Route: 058

REACTIONS (4)
  - Injection site pain [Unknown]
  - Device use issue [Unknown]
  - Device physical property issue [Unknown]
  - Product dose omission in error [Unknown]
